FAERS Safety Report 19832115 (Version 3)
Quarter: 2022Q1

REPORT INFORMATION
  Report Type: Report from Study
  Country: US (occurrence: US)
  Receive Date: 20210915
  Receipt Date: 20220110
  Transmission Date: 20220423
  Serious: Yes (Hospitalization, Disabling)
  Sender: FDA-Public Use
  Company Number: US-AUROBINDO-AUR-APL-2021-039185

PATIENT
  Age: 50 Year
  Sex: Female
  Weight: 50.8 kg

DRUGS (2)
  1. BELINOSTAT [Suspect]
     Active Substance: BELINOSTAT
     Indication: Haematological malignancy
     Dosage: 1150 MILLIGRAM, ONCE A DAY
     Route: 042
     Dates: start: 20210830, end: 20210903
  2. ATAZANAVIR [Suspect]
     Active Substance: ATAZANAVIR
     Indication: Product used for unknown indication
     Dosage: UNK
     Route: 048

REACTIONS (2)
  - Jugular vein thrombosis [Recovered/Resolved with Sequelae]
  - Nausea [Recovered/Resolved]

NARRATIVE: CASE EVENT DATE: 20210830
